FAERS Safety Report 23796534 (Version 1)
Quarter: 2024Q2

REPORT INFORMATION
  Report Type: Spontaneous
  Country: US (occurrence: US)
  Receive Date: 20240430
  Receipt Date: 20240430
  Transmission Date: 20240716
  Serious: No
  Sender: FDA-Public Use
  Company Number: US-HALEON-2168807

PATIENT
  Sex: Female

DRUGS (1)
  1. SENSODYNE SENSITIVITY GUM AND ENAMEL MINT [Suspect]
     Active Substance: STANNOUS FLUORIDE
     Indication: Oral infection

REACTIONS (2)
  - Drug effective for unapproved indication [Unknown]
  - Product use in unapproved indication [Unknown]
